FAERS Safety Report 22236633 (Version 1)
Quarter: 2023Q2

REPORT INFORMATION
  Report Type: Spontaneous
  Country: CH (occurrence: CH)
  Receive Date: 20230420
  Receipt Date: 20230420
  Transmission Date: 20230722
  Serious: Yes (Other)
  Sender: FDA-Public Use
  Company Number: CH-CHEMOCENTRYX, INC.-2023CHCCXI0935

PATIENT
  Sex: Male
  Weight: 95 kg

DRUGS (7)
  1. TAVNEOS [Suspect]
     Active Substance: AVACOPAN
     Indication: Product used for unknown indication
     Dosage: 10 MG 3-0-3
     Route: 048
  2. PREDNISOLONE [Concomitant]
     Active Substance: PREDNISOLONE
     Dosage: 20 MG, 5 MG. DOSAGE: 15 MG 1-0-0
     Route: 065
  3. BACTRIM [Concomitant]
     Active Substance: SULFAMETHOXAZOLE\TRIMETHOPRIM
     Dosage: 800/160 MG AND 0.5 3X/WEEK (MON, WED, FRI)
     Route: 065
  4. SODIUM BICARBONATE [Concomitant]
     Active Substance: SODIUM BICARBONATE
     Dosage: 500 MG 1-0-1
     Route: 065
  5. Calcimagon D3 Forte [Concomitant]
     Dosage: 1-0-0
     Route: 065
  6. DUTASTERIDE\TAMSULOSIN [Concomitant]
     Active Substance: DUTASTERIDE\TAMSULOSIN
     Dosage: 0.5/0.4 MG 1-0-0
     Route: 065
  7. ATORVASTATIN [Concomitant]
     Active Substance: ATORVASTATIN
     Dosage: 10 MG 0-0-1
     Route: 065

REACTIONS (2)
  - Deep vein thrombosis [Recovering/Resolving]
  - Renal impairment [Unknown]
